FAERS Safety Report 25221074 (Version 2)
Quarter: 2025Q2

REPORT INFORMATION
  Report Type: Spontaneous
  Country: CN (occurrence: CN)
  Receive Date: 20250421
  Receipt Date: 20250430
  Transmission Date: 20250717
  Serious: Yes (Hospitalization, Other)
  Sender: ALKEM
  Company Number: None

PATIENT
  Age: 26 Year
  Sex: Female

DRUGS (7)
  1. TACROLIMUS [Suspect]
     Active Substance: TACROLIMUS
     Indication: Myasthenia gravis
     Dosage: 5 MILLIGRAM, QD (EVERY 1 DAY)
     Route: 065
  2. TACROLIMUS [Suspect]
     Active Substance: TACROLIMUS
     Dosage: 0.5 MILLIGRAM, QD (DOSE REDUCED)
     Route: 065
  3. TACROLIMUS [Suspect]
     Active Substance: TACROLIMUS
     Dosage: 0.3 MILLIGRAM, QD (DOSE REDUCED)
     Route: 065
  4. TACROLIMUS [Suspect]
     Active Substance: TACROLIMUS
     Route: 065
  5. PREDNISONE ACETATE [Suspect]
     Active Substance: PREDNISONE ACETATE
     Indication: Myasthenia gravis
     Dosage: 60 MILLIGRAM, QD (EVERY 1 DAY)
     Route: 065
  6. PREDNISONE ACETATE [Suspect]
     Active Substance: PREDNISONE ACETATE
     Dosage: 17.5 MILLIGRAM, QD (EVERY 1 DAY)
     Route: 065
  7. ACETAMINOPHEN [Concomitant]
     Active Substance: ACETAMINOPHEN
     Indication: Product used for unknown indication
     Route: 065

REACTIONS (10)
  - Immunosuppressant drug level increased [Recovered/Resolved]
  - Nephropathy toxic [Recovered/Resolved]
  - Lymphopenia [Recovered/Resolved]
  - Leukocytosis [Recovered/Resolved]
  - Hyperglycaemia [Recovered/Resolved]
  - Hyperuricaemia [Recovered/Resolved]
  - Blood creatinine increased [Recovered/Resolved]
  - Toxicity to various agents [Recovered/Resolved]
  - C-reactive protein increased [Recovered/Resolved]
  - Infection [Unknown]
